FAERS Safety Report 4403651-3 (Version None)
Quarter: 2004Q3

REPORT INFORMATION
  Report Type: 
  Country: None (occurrence: None)
  Receive Date: 20040721
  Receipt Date: 20040714
  Transmission Date: 20050211
  Serious: Yes (Other)
  Sender: FDA-Public Use
  Company Number: US-BRISTOL-MYERS SQUIBB COMPANY-12643268

PATIENT
  Age: 58 Year
  Sex: Female

DRUGS (5)
  1. ESTRACE [Suspect]
     Indication: MENOPAUSAL SYMPTOMS
  2. MEDROXYPROGESTERONE [Suspect]
     Indication: MENOPAUSAL SYMPTOMS
  3. PREMPRO [Suspect]
     Indication: MENOPAUSAL SYMPTOMS
  4. PREMARIN [Suspect]
     Indication: MENOPAUSAL SYMPTOMS
  5. ESTRATEST [Suspect]
     Indication: MENOPAUSAL SYMPTOMS

REACTIONS (1)
  - BREAST CANCER IN SITU [None]
